FAERS Safety Report 5153088-7 (Version None)
Quarter: 2006Q4

REPORT INFORMATION
  Report Type: 
  Country: None (occurrence: None)
  Receive Date: 20061117
  Receipt Date: 20061103
  Transmission Date: 20070319
  Serious: Yes (Other)
  Sender: FDA-Public Use
  Company Number: CA-AVENTIS-200621498GDDC

PATIENT
  Age: 63 Year
  Sex: Female

DRUGS (8)
  1. FLAGYL [Suspect]
     Route: 042
  2. AMPICILLIN SODIUM [Concomitant]
     Route: 042
  3. GENTAMICIN [Concomitant]
     Route: 042
  4. DYAZIDE [Concomitant]
     Dosage: DOSE: 1 DF
     Route: 048
  5. LOSARTAN POSTASSIUM [Concomitant]
     Route: 048
  6. VENTOLIN [Concomitant]
     Dosage: DOSE: 2 DF
     Route: 055
  7. ATROVENT [Concomitant]
     Dosage: DOSE: 2 DF
     Route: 055
  8. BECLOMETHASONE DIPROPIONATE [Concomitant]
     Dosage: DOSE: 2 DF
     Route: 055

REACTIONS (4)
  - DYSPNOEA [None]
  - NASAL CONGESTION [None]
  - RASH MACULAR [None]
  - THROAT TIGHTNESS [None]
